FAERS Safety Report 8589827-2 (Version None)
Quarter: 2012Q3

REPORT INFORMATION
  Report Type: 
  Country: None (occurrence: None)
  Receive Date: 20120813
  Receipt Date: 20120802
  Transmission Date: 20120928
  Serious: Yes (Death, Hospitalization)
  Sender: FDA-Public Use
  Company Number: FR-CELGENEUS-056-21880-12011897

PATIENT
  Sex: Female

DRUGS (27)
  1. DEXAMETHASONE [Suspect]
     Indication: MULTIPLE MYELOMA
     Route: 065
     Dates: start: 20110923
  2. DEXAMETHASONE [Suspect]
     Route: 065
     Dates: start: 20111115
  3. CYCLOPHOSPHAMIDE [Concomitant]
     Route: 065
     Dates: start: 20111209
  4. TIORFAN [Concomitant]
     Dosage: 6
     Route: 048
     Dates: start: 20120101
  5. GRANOCYTES [Concomitant]
     Indication: NEUTROPENIA
     Dosage: 6 MILLIGRAM
     Route: 058
     Dates: start: 20120108, end: 20120108
  6. XANAX [Concomitant]
     Indication: ANXIETY
     Dosage: .5 MILLIGRAM
     Route: 048
     Dates: start: 20120101
  7. CHLORPROMAZINE HCL [Concomitant]
     Indication: INFECTION PROPHYLAXIS
     Route: 041
     Dates: start: 20110113
  8. SPASFON [Concomitant]
     Dosage: 160 MILLIGRAM
     Route: 041
     Dates: start: 20120101
  9. POTASSIUM CHLORIDE [Concomitant]
     Route: 041
     Dates: start: 20120101
  10. ALUMINUM HYDROXIDE AND MAGNESIUM TRISILICATE [Concomitant]
     Route: 048
     Dates: start: 20120101
  11. ZOVIRAX [Concomitant]
     Indication: INFECTION PROPHYLAXIS
     Dosage: 750 MILLIGRAM
     Route: 041
     Dates: start: 20120113
  12. VANCOMYCIN [Concomitant]
     Indication: INFECTION PROPHYLAXIS
     Dosage: 1.5 GRAM
     Route: 041
     Dates: start: 20120113
  13. NEXIUM [Concomitant]
     Dosage: 40 MILLIGRAM
     Route: 041
     Dates: start: 20120101
  14. ZOFRAN [Concomitant]
     Indication: GASTRITIS PROPHYLAXIS
     Dosage: 1
     Route: 041
     Dates: start: 20120101
  15. MORPHINE [Concomitant]
     Route: 041
     Dates: start: 20120101
  16. BORTEZOMIB [Suspect]
     Indication: MULTIPLE MYELOMA
     Route: 050
     Dates: start: 20110923
  17. BORTEZOMIB [Suspect]
     Route: 050
     Dates: start: 20111114
  18. CIPROFLOXACIN HYDROCHLORIDE [Concomitant]
     Indication: INFECTION PROPHYLAXIS
     Dosage: 800 MILLIGRAM
     Route: 041
     Dates: start: 20120113
  19. MORPHINE [Concomitant]
     Indication: PAIN PROPHYLAXIS
     Dosage: 3MG/H
     Route: 041
     Dates: start: 20120101
  20. PROGESTERONE [Concomitant]
     Indication: MENOPAUSE
     Dosage: 1 OTHER
     Route: 048
     Dates: start: 20030101
  21. REVLIMID [Suspect]
     Indication: MULTIPLE MYELOMA
     Route: 048
     Dates: start: 20110923
  22. GAVISCON [Concomitant]
     Dosage: 2
     Route: 048
     Dates: start: 20120101
  23. PAROEX [Concomitant]
     Dosage: 4 OTHER
     Route: 048
     Dates: start: 20120101
  24. REVLIMID [Suspect]
     Route: 048
     Dates: start: 20111114
  25. THAOR [Concomitant]
     Indication: HYPERTENSION
     Dosage: 10 MILLIGRAM
     Route: 048
     Dates: start: 20000101
  26. LOVENOX [Concomitant]
     Indication: THROMBOSIS PROPHYLAXIS
     Dosage: .4 MILLIGRAM/MILLILITERS
     Route: 058
     Dates: start: 20110923
  27. IMIPENEM AND CILASTATIN SODIUM [Concomitant]
     Indication: INFECTION PROPHYLAXIS
     Dosage: 1500 MILLIGRAM
     Route: 041
     Dates: start: 20120113

REACTIONS (1)
  - PNEUMONIA RESPIRATORY SYNCYTIAL VIRAL [None]
